FAERS Safety Report 7911626-2 (Version None)
Quarter: 2011Q4

REPORT INFORMATION
  Report Type: 
  Country: None (occurrence: None)
  Receive Date: 20111114
  Receipt Date: 20111114
  Transmission Date: 20120403
  Serious: Yes (Other)
  Sender: FDA-Public Use
  Company Number: None

PATIENT
  Age: 47 Year
  Sex: Male
  Weight: 81.646 kg

DRUGS (1)
  1. RISPERDAL [Suspect]
     Indication: BIPOLAR DISORDER
     Route: 048
     Dates: start: 20060419, end: 20060519

REACTIONS (9)
  - HALLUCINATION [None]
  - PARAESTHESIA [None]
  - CRYING [None]
  - IMPAIRED DRIVING ABILITY [None]
  - FEELING ABNORMAL [None]
  - FEAR [None]
  - HEART RATE INCREASED [None]
  - PARANOIA [None]
  - DROOLING [None]
